FAERS Safety Report 23296987 (Version 1)
Quarter: 2023Q4

REPORT INFORMATION
  Report Type: Spontaneous
  Country: US (occurrence: None)
  Receive Date: 20231214
  Receipt Date: 20231214
  Transmission Date: 20240109
  Serious: Yes (Hospitalization)
  Sender: FDA-Public Use
  Company Number: None

PATIENT
  Age: 52 Year
  Sex: Female
  Weight: 92.99 kg

DRUGS (1)
  1. AUSTEDO XR [Suspect]
     Active Substance: DEUTETRABENAZINE
     Indication: Product used for unknown indication
     Dosage: FREQUENCY : DAILY;?
     Route: 048
     Dates: start: 20230828

REACTIONS (1)
  - Adverse drug reaction [None]

NARRATIVE: CASE EVENT DATE: 20231208
